FAERS Safety Report 9855961 (Version 1)
Quarter: 2013Q4

REPORT INFORMATION
  Report Type: Spontaneous
  Country: US (occurrence: None)
  Receive Date: 20131226
  Receipt Date: 20131226
  Transmission Date: 20140711
  Serious: No
  Sender: FDA-Public Use
  Company Number: PHHY2013US084681

PATIENT
  Age: 64 Year
  Sex: Female

DRUGS (13)
  1. GILENYA (FINGOLIMOD) CAPSULE, 0.5MG [Suspect]
     Indication: RELAPSING-REMITTING MULTIPLE SCLEROSIS
     Route: 048
     Dates: start: 201103, end: 201304
  2. INDERAL [Suspect]
     Route: 048
     Dates: end: 20120824
  3. NORVASC (AMLODIPINE BESILATE) [Concomitant]
  4. RESTASIS (CICLOSPORIN) EMULSION [Concomitant]
  5. ENABLEX (DARIFENACIN HYDROBROMIDE) [Concomitant]
  6. ARTHROTEC (DICLOFENAC SODIUM, MISOPROSTOL) [Concomitant]
  7. VIBRA-TABS (DOXYCYCLINE HYCLATE) [Concomitant]
  8. PREMARIN (ESTROGENS CONJUGATED) [Concomitant]
  9. ARTIFICIAL TEARS (HYPROMELLOSE) [Concomitant]
  10. CYANOCOBALAMIN (CYANOCOBALAMIN) (CYANOCOBALAMIN) [Concomitant]
  11. FERROUS SULPHATE (FERROUS SULFATE) [Concomitant]
  12. CALCIUM + VITAMIN D (CALCIUM CARBONATE, COLECALCIFEROL) [Concomitant]
  13. ZANAFLEX (TIZANIDINE HYDROCHLORIDE) [Concomitant]

REACTIONS (3)
  - Tendonitis [None]
  - Osteoarthritis [None]
  - Plantar fasciitis [None]
